FAERS Safety Report 22369234 (Version 2)
Quarter: 2023Q2

REPORT INFORMATION
  Report Type: Spontaneous
  Country: BR (occurrence: BR)
  Receive Date: 20230525
  Receipt Date: 20230606
  Transmission Date: 20230722
  Serious: Yes (Death)
  Sender: FDA-Public Use
  Company Number: BR-BoehringerIngelheim-2023-BI-239941

PATIENT
  Age: 79 Year
  Sex: Female

DRUGS (1)
  1. OFEV [Suspect]
     Active Substance: NINTEDANIB
     Indication: Idiopathic pulmonary fibrosis
     Dosage: 2 TIMES A DAY, MORNING AND EVENING.
     Route: 048
     Dates: start: 2022, end: 202305

REACTIONS (2)
  - Respiratory failure [Fatal]
  - Idiopathic pulmonary fibrosis [Fatal]
